FAERS Safety Report 8947636 (Version 2)
Quarter: 2013Q1

REPORT INFORMATION
  Report Type: Report from Study
  Country: DE (occurrence: DE)
  Receive Date: 20121205
  Receipt Date: 20130204
  Transmission Date: 20140127
  Serious: Yes (Hospitalization)
  Sender: FDA-Public Use
  Company Number: DE-ROCHE-1162020

PATIENT
  Age: 48 Year
  Sex: Female
  Weight: 63 kg

DRUGS (10)
  1. BEVACIZUMAB [Suspect]
     Indication: BREAST CANCER
     Dosage: DATE OF THE LAST DOSE  PRIOR TO EVENT :12/NOV/2012
     Route: 065
     Dates: start: 20120227
  2. CAPECITABINE [Suspect]
     Indication: BREAST CANCER
     Route: 065
     Dates: start: 20120227
  3. CAPECITABINE [Suspect]
     Dosage: NEW CYCLE
     Route: 065
     Dates: start: 20121112
  4. PANTOPRAZOLE [Concomitant]
     Route: 065
     Dates: start: 20121112
  5. OXYCODONE [Concomitant]
     Route: 065
     Dates: start: 20121112
  6. MARCUMAR [Concomitant]
     Route: 065
     Dates: start: 20120430
  7. GABAPENTIN [Concomitant]
     Route: 065
     Dates: start: 20121112
  8. DEXA [Concomitant]
     Route: 065
     Dates: start: 20121112
  9. OXYGESIC AKUT [Concomitant]
     Route: 065
     Dates: start: 20121112
  10. AMITRIPTYLINE [Concomitant]
     Route: 065

REACTIONS (1)
  - General physical health deterioration [Not Recovered/Not Resolved]
